FAERS Safety Report 7009685-7 (Version None)
Quarter: 2010Q3

REPORT INFORMATION
  Report Type: 
  Country: None (occurrence: None)
  Receive Date: 20100923
  Receipt Date: 20100914
  Transmission Date: 20110219
  Serious: Yes (Other)
  Sender: FDA-Public Use
  Company Number: JP-PFIZER INC-2010116249

PATIENT
  Age: 82 Year
  Sex: Female
  Weight: 44 kg

DRUGS (8)
  1. NORVASC [Suspect]
     Indication: HYPERTENSION
     Dosage: 2.5 MG, 1X/DAY
     Route: 048
     Dates: end: 20080426
  2. DEPAS [Concomitant]
     Indication: DEPRESSION
     Dosage: 0.5 MG, 1X/DAY
     Route: 048
  3. SPELEAR [Concomitant]
     Indication: BRONCHITIS CHRONIC
     Dosage: 400 MG, 2X/DAY
     Route: 048
  4. ALESION [Concomitant]
     Indication: RHINITIS ALLERGIC
     Dosage: 10 MG, 2X/DAY
     Route: 048
  5. BLOPRESS [Concomitant]
     Indication: HYPERTENSION
     Dosage: 8 MG, 1X/DAY
     Route: 048
  6. SERMION [Concomitant]
     Dosage: 5 MG, 3X/DAY
     Route: 048
  7. BIOFERMIN [Concomitant]
     Indication: PROPHYLAXIS AGAINST DIARRHOEA
     Dosage: 1 G, 3X/DAY
     Route: 048
  8. TAKEPRON [Concomitant]
     Indication: REFLUX OESOPHAGITIS
     Dosage: 15 MG, 1X/DAY
     Route: 048

REACTIONS (1)
  - PARKINSONISM [None]
